FAERS Safety Report 4769500-9 (Version None)
Quarter: 2005Q3

REPORT INFORMATION
  Report Type: 
  Country: None (occurrence: None)
  Receive Date: 20050912
  Receipt Date: 20050812
  Transmission Date: 20060218
  Serious: Yes (Other)
  Sender: FDA-Public Use
  Company Number: 2005-01733

PATIENT
  Age: 61 Year
  Sex: Male
  Weight: 125.6 kg

DRUGS (11)
  1. VELCADE [Suspect]
     Indication: MULTIPLE MYELOMA
     Dosage: 1.10 MG/M2, IV BOLUS
     Route: 040
     Dates: start: 20050301
  2. LOPRESSOR [Concomitant]
  3. VASOTEC [Concomitant]
  4. K-DUR 10 [Concomitant]
  5. DEMADEX [Concomitant]
  6. NEURONTIN [Concomitant]
  7. PERCOCET [Concomitant]
  8. COUMADIN [Concomitant]
  9. AMITRIPTYLINE HCL [Concomitant]
  10. SENNA (SENNA) [Concomitant]
  11. GLUCOSAMINE W/CHONDROITIN SULFATES (ASCORBIC ACID, GLUCOSAMINE SULFATE [Concomitant]

REACTIONS (1)
  - ANGIONEUROTIC OEDEMA [None]
